FAERS Safety Report 8585788-0 (Version None)
Quarter: 2012Q3

REPORT INFORMATION
  Report Type: 
  Country: None (occurrence: None)
  Receive Date: 20120802
  Receipt Date: 20120802
  Transmission Date: 20120928
  Serious: Yes (Hospitalization, Disabling, Other)
  Sender: FDA-Public Use
  Company Number: None

PATIENT
  Age: 49 Year
  Sex: Female
  Weight: 63.5036 kg

DRUGS (1)
  1. MEGESTROL ACETATE [Suspect]
     Indication: MENSTRUAL DISORDER
     Dosage: 40 MG 2 X A DAY PO
     Route: 048
     Dates: start: 20120107, end: 20120705

REACTIONS (2)
  - THROMBOSIS [None]
  - LIVER DISORDER [None]
